FAERS Safety Report 14574377 (Version 2)
Quarter: 2018Q1

REPORT INFORMATION
  Report Type: Spontaneous
  Country: RU (occurrence: RU)
  Receive Date: 20180226
  Receipt Date: 20180307
  Transmission Date: 20180509
  Serious: Yes (Hospitalization, Other)
  Sender: FDA-Public Use
  Company Number: RU-ASTRAZENECA-2017SF29208

PATIENT
  Age: 65 Year
  Sex: Female
  Weight: 72 kg

DRUGS (7)
  1. BRILINTA [Suspect]
     Active Substance: TICAGRELOR
     Indication: MYOCARDIAL INFARCTION
     Route: 048
     Dates: start: 20161122
  2. ACECARDOL [Concomitant]
     Active Substance: ASPIRIN
  3. VAMLOSET [Concomitant]
  4. ATORVASTATIN [Concomitant]
     Active Substance: ATORVASTATIN
  5. AMLODIPINE [Concomitant]
     Active Substance: AMLODIPINE BESYLATE
  6. BISOPROLOL [Concomitant]
     Active Substance: BISOPROLOL
  7. PERINEVA [Concomitant]
     Active Substance: PERINDOPRIL ERBUMINE

REACTIONS (8)
  - Angina unstable [Unknown]
  - Intentional product misuse [Unknown]
  - Product use issue [Unknown]
  - Dyspnoea [Not Recovered/Not Resolved]
  - Vascular occlusion [Recovered/Resolved]
  - Off label use [Unknown]
  - Malaise [Unknown]
  - Axillary pain [Not Recovered/Not Resolved]

NARRATIVE: CASE EVENT DATE: 20161206
